FAERS Safety Report 25406888 (Version 1)
Quarter: 2025Q2

REPORT INFORMATION
  Report Type: Spontaneous
  Country: CN (occurrence: CN)
  Receive Date: 20250606
  Receipt Date: 20250606
  Transmission Date: 20250717
  Serious: Yes (Other)
  Sender: ABBVIE
  Company Number: CN-PFIZER INC-PV202500065556

PATIENT
  Age: 71 Year
  Sex: Female
  Weight: 35 kg

DRUGS (1)
  1. AVIBACTAM SODIUM\CEFTAZIDIME [Suspect]
     Active Substance: AVIBACTAM SODIUM\CEFTAZIDIME
     Indication: Pseudomonas infection
     Route: 041
     Dates: start: 20250522, end: 20250525

REACTIONS (4)
  - Toxic encephalopathy [Recovering/Resolving]
  - Nervous system disorder [Recovering/Resolving]
  - Dysphoria [Recovering/Resolving]
  - Indifference [Recovering/Resolving]

NARRATIVE: CASE EVENT DATE: 20250525
